FAERS Safety Report 5485882-7 (Version None)
Quarter: 2007Q4

REPORT INFORMATION
  Report Type: 
  Country: None (occurrence: None)
  Receive Date: 20071015
  Receipt Date: 20071001
  Transmission Date: 20080405
  Serious: Yes (Hospitalization)
  Sender: FDA-Public Use
  Company Number: CA-GENENTECH-247817

PATIENT
  Sex: Female
  Weight: 55.6 kg

DRUGS (12)
  1. BLINDED BEVACIZUMAB [Suspect]
     Dosage: UNK, Q3W
     Route: 042
     Dates: start: 20070802
  2. CYCLOPHOSPHAMIDE [Suspect]
     Dosage: UNK, Q3W
     Route: 042
     Dates: start: 20070802
  3. DOXORUBICIN HCL [Suspect]
     Dosage: UNK, Q3W
     Route: 042
     Dates: start: 20070802
  4. BLINDED PLACEBO [Suspect]
     Dosage: UNK, Q3W
     Route: 042
     Dates: start: 20070802
  5. PREDNISONE [Suspect]
     Dosage: UNK, Q3W
     Route: 042
     Dates: start: 20070802
  6. BLINDED RITUXIMAB [Suspect]
     Dosage: UNK, Q3W
     Route: 042
     Dates: start: 20070802
  7. VINCRISTINE [Suspect]
     Dosage: UNK, Q3W
     Route: 042
     Dates: start: 20070802
  8. RITUXAN [Suspect]
     Indication: DIFFUSE LARGE B-CELL LYMPHOMA
     Dosage: 585 MG, Q3W
     Route: 042
     Dates: start: 20070803
  9. CYCLOPHOSPHAMIDE [Suspect]
     Indication: DIFFUSE LARGE B-CELL LYMPHOMA
     Dosage: 1170 MG, Q3W
     Route: 042
     Dates: start: 20070803
  10. DOXORUBICIN HCL [Suspect]
     Indication: DIFFUSE LARGE B-CELL LYMPHOMA
     Dosage: 78 MG, Q3W
     Route: 042
     Dates: start: 20070803
  11. VINCRISTINE [Suspect]
     Indication: DIFFUSE LARGE B-CELL LYMPHOMA
     Dosage: 2 MG, Q3W
     Route: 042
     Dates: start: 20070803
  12. PREDNISONE [Suspect]
     Indication: DIFFUSE LARGE B-CELL LYMPHOMA
     Dosage: 100 MG, UNK
     Route: 048
     Dates: start: 20070803

REACTIONS (1)
  - PNEUMONIA [None]
